FAERS Safety Report 8288986-9 (Version None)
Quarter: 2012Q2

REPORT INFORMATION
  Report Type: 
  Country: None (occurrence: None)
  Receive Date: 20120412
  Receipt Date: 20120330
  Transmission Date: 20120825
  Serious: Yes (Other)
  Sender: FDA-Public Use
  Company Number: JP-2012-13906

PATIENT
  Age: 69 Year
  Sex: Male
  Weight: 42 kg

DRUGS (17)
  1. SAMSCA [Suspect]
     Indication: FLUID RETENTION
     Dosage: 3.75 MG MILLIGRAM(S), QAM, ORAL
     Route: 048
     Dates: start: 20120221, end: 20120302
  2. WARFARIN SODIUM [Concomitant]
  3. ASPIRIN [Concomitant]
  4. URSO 250 [Concomitant]
  5. ISOSORBIDE DINITRATE [Concomitant]
  6. ZOSYN [Concomitant]
  7. TRICHLORMETHIAZIDE [Suspect]
     Indication: CARDIAC FAILURE
     Dosage: 1 MG MILLIGRAM(S), DAILY DOSE, ORAL
     Route: 048
  8. TICLOPIDINE HCL [Concomitant]
  9. ALLOPURINOL [Concomitant]
  10. FERO GRADUMET (FERROUS SULFATE) [Concomitant]
  11. ESPO (EPOETIN ALFA) [Concomitant]
  12. MAGLAX (MAGNESIUM OXIDE) [Concomitant]
  13. LENDORM [Concomitant]
  14. ALOSENN (ACHILLEA MILLEFOLIUM, RUBIA TINCTORUM ROOT TINCTURE, SENNA AL [Concomitant]
  15. RABEPRAZOLE SODIUM [Concomitant]
  16. LASIX [Suspect]
     Indication: CARDIAC FAILURE
     Dosage: 80 MG MILLIGRAM(S), DAILY DOSE, ORAL
     Route: 048
  17. CARVEDILOL [Concomitant]

REACTIONS (4)
  - DEHYDRATION [None]
  - RENAL IMPAIRMENT [None]
  - VOLUME BLOOD DECREASED [None]
  - WEIGHT DECREASED [None]
